FAERS Safety Report 12432253 (Version 2)
Quarter: 2016Q3

REPORT INFORMATION
  Report Type: Spontaneous
  Country: US (occurrence: US)
  Receive Date: 20160603
  Receipt Date: 20160919
  Transmission Date: 20161109
  Serious: Yes (Disabling, Other)
  Sender: FDA-Public Use
  Company Number: US-CELGENEUS-USA-2016056836

PATIENT
  Age: 53 Year
  Sex: Female
  Weight: 68.1 kg

DRUGS (4)
  1. AMBIEN [Concomitant]
     Active Substance: ZOLPIDEM TARTRATE
     Indication: PRODUCT USED FOR UNKNOWN INDICATION
     Route: 065
  2. REVLIMID [Suspect]
     Active Substance: LENALIDOMIDE
     Indication: MYELODYSPLASTIC SYNDROME
     Route: 048
     Dates: start: 201308
  3. AMOXICILLIN. [Suspect]
     Active Substance: AMOXICILLIN
     Indication: SWELLING FACE
     Route: 065
     Dates: start: 201605
  4. REVLIMID [Suspect]
     Active Substance: LENALIDOMIDE
     Route: 048
     Dates: start: 20160422

REACTIONS (3)
  - Drug hypersensitivity [Recovered/Resolved]
  - Tooth infection [Recovering/Resolving]
  - Haemoglobin decreased [Not Recovered/Not Resolved]

NARRATIVE: CASE EVENT DATE: 20160518
